FAERS Safety Report 19280785 (Version 1)
Quarter: 2021Q2

REPORT INFORMATION
  Report Type: Spontaneous
  Country: ES (occurrence: ES)
  Receive Date: 20210521
  Receipt Date: 20210521
  Transmission Date: 20210717
  Serious: Yes (Death, Hospitalization, Other)
  Sender: FDA-Public Use
  Company Number: ES-MICRO LABS LIMITED-ML2021-01587

PATIENT
  Age: 60 Year
  Sex: Male

DRUGS (13)
  1. AMOXICILLIN/CLAVULANIC ACID [Suspect]
     Active Substance: AMOXICILLIN\CLAVULANIC ACID
     Indication: PROPHYLAXIS
     Route: 042
  2. PROPOFOL. [Concomitant]
     Active Substance: PROPOFOL
     Indication: ANAESTHESIA
  3. FENTANEST [Concomitant]
     Active Substance: FENTANYL CITRATE
     Indication: ANAESTHESIA
  4. SEVOFLURANE. [Concomitant]
     Active Substance: SEVOFLURANE
     Indication: ANAESTHESIA
  5. ROCURONIUM [Concomitant]
     Active Substance: ROCURONIUM BROMIDE
     Indication: ANAESTHESIA
  6. EPHEDRINE. [Concomitant]
     Active Substance: EPHEDRINE
     Dosage: EVERY 4 MIN TOGETHER WITH A SINGLE DOSE OF AMIODARONE
  7. DEXKETOPROFEN [Concomitant]
     Active Substance: DEXKETOPROFEN
  8. ATROPINE. [Concomitant]
     Active Substance: ATROPINE
  9. SIMVASTATIN. [Concomitant]
     Active Substance: SIMVASTATIN
  10. AMIODARONE [Concomitant]
     Active Substance: AMIODARONE
  11. PARACETAMOL [Concomitant]
     Active Substance: ACETAMINOPHEN
  12. REMIFENTANIL [Concomitant]
     Active Substance: REMIFENTANIL
     Indication: ANAESTHESIA
  13. NOREPINEPHRINE. [Concomitant]
     Active Substance: NOREPINEPHRINE

REACTIONS (2)
  - Hypoxic-ischaemic encephalopathy [Fatal]
  - Kounis syndrome [Recovering/Resolving]
